FAERS Safety Report 7854203-4 (Version None)
Quarter: 2011Q4

REPORT INFORMATION
  Report Type: 
  Country: None (occurrence: None)
  Receive Date: 20111026
  Receipt Date: 20111013
  Transmission Date: 20120403
  Serious: Yes (Hospitalization, Disabling)
  Sender: FDA-Public Use
  Company Number: GB-MYLANLABS-2011S1021452

PATIENT
  Age: 13 Year
  Sex: Female
  Weight: 64.6 kg

DRUGS (13)
  1. TOPIRAMATE [Suspect]
     Dates: start: 20100101
  2. CARBAMAZEPINE [Concomitant]
     Indication: CONVULSION
  3. TOPIRAMATE [Suspect]
     Dates: start: 20100101
  4. TOPIRAMATE [Suspect]
     Dates: start: 20100101
  5. VALPROATE SODIUM [Suspect]
     Indication: CONVULSION
  6. CLOBAZAM [Concomitant]
     Indication: CONVULSION
  7. VALPROATE SODIUM [Suspect]
  8. VALPROATE SODIUM [Suspect]
  9. TOPIRAMATE [Suspect]
     Indication: CONVULSION
     Dates: start: 20100101
  10. TOPIRAMATE [Suspect]
     Dates: start: 20100101
  11. VALPROATE SODIUM [Suspect]
  12. TOPIRAMATE [Suspect]
     Dates: start: 20100101
  13. VALPROATE SODIUM [Suspect]

REACTIONS (9)
  - DECREASED APPETITE [None]
  - DEPRESSED MOOD [None]
  - SPEECH DISORDER [None]
  - WEIGHT DECREASED [None]
  - MALAISE [None]
  - ALOPECIA [None]
  - APATHY [None]
  - PERSONALITY CHANGE [None]
  - EPILEPSY [None]
